FAERS Safety Report 7380052-X (Version None)
Quarter: 2011Q1

REPORT INFORMATION
  Report Type: 
  Country: None (occurrence: None)
  Receive Date: 20110329
  Receipt Date: 20110322
  Transmission Date: 20110831
  Serious: Yes (Death, Hospitalization)
  Sender: FDA-Public Use
  Company Number: JP-JNJFOC-20101002583

PATIENT
  Sex: Female
  Weight: 54 kg

DRUGS (27)
  1. DOXORUBICIN HCL [Suspect]
     Indication: OVARIAN CANCER RECURRENT
     Dosage: CYCLE 8
     Route: 042
  2. DOXORUBICIN HCL [Suspect]
     Dosage: CYCLE 5
     Route: 042
  3. CARBOPLATIN [Suspect]
     Indication: PRODUCT USED FOR UNKNOWN INDICATION
     Route: 042
  4. CALONAL [Concomitant]
     Indication: OVARIAN CANCER RECURRENT
     Route: 048
  5. DOXORUBICIN HCL [Suspect]
     Dosage: CYCLE 7
     Route: 042
  6. SENNOSIDE [Concomitant]
     Indication: PRODUCT USED FOR UNKNOWN INDICATION
     Route: 048
  7. GRANISETRON HCL [Concomitant]
     Indication: PROPHYLAXIS
     Route: 042
  8. OXINORM [Concomitant]
     Indication: OVARIAN CANCER RECURRENT
     Route: 048
  9. MEVALOTIN [Concomitant]
     Indication: PRODUCT USED FOR UNKNOWN INDICATION
     Route: 048
  10. MAGMITT [Concomitant]
     Indication: PRODUCT USED FOR UNKNOWN INDICATION
     Route: 048
  11. FLUMARIN [Concomitant]
     Route: 042
  12. DOXORUBICIN HCL [Suspect]
     Dosage: CYCLE 3
     Route: 042
  13. CARBOPLATIN [Concomitant]
     Route: 042
  14. DOXORUBICIN HCL [Suspect]
     Dosage: CYCLE 6
     Route: 042
  15. DOXORUBICIN HCL [Suspect]
     Dosage: CYCLE 4
     Route: 042
  16. DOXORUBICIN HCL [Suspect]
     Dosage: CYCLE 1
     Route: 042
  17. FAMOTIDINE [Concomitant]
     Indication: PRODUCT USED FOR UNKNOWN INDICATION
     Route: 048
  18. DOPAMINE [Concomitant]
     Route: 042
  19. MAINTATE [Concomitant]
     Indication: PRODUCT USED FOR UNKNOWN INDICATION
     Route: 048
  20. PRIMPERAN TAB [Concomitant]
     Indication: PROPHYLAXIS
     Route: 048
  21. DOXORUBICIN HCL [Suspect]
     Dosage: CYCLE 2
     Route: 042
  22. LENDORMIN D [Concomitant]
     Indication: PRODUCT USED FOR UNKNOWN INDICATION
     Route: 048
  23. DEXART [Concomitant]
     Indication: PROPHYLAXIS
     Route: 042
  24. ZANTAC [Concomitant]
     Indication: PROPHYLAXIS
     Route: 042
  25. FLUMARIN [Concomitant]
     Route: 042
  26. BETAMETHASONE [Concomitant]
     Indication: OVARIAN CANCER RECURRENT
     Route: 042
  27. FENTANYL CITRATE [Concomitant]
     Indication: OVARIAN CANCER RECURRENT
     Route: 065

REACTIONS (2)
  - OVARIAN CANCER [None]
  - RENAL FAILURE [None]
